FAERS Safety Report 9387692 (Version 2)
Quarter: 2013Q3

REPORT INFORMATION
  Report Type: Spontaneous
  Country: FR (occurrence: None)
  Receive Date: 20130701
  Receipt Date: 20130703
  Transmission Date: 20140515
  Serious: Yes (Death, Other)
  Sender: FDA-Public Use
  Company Number: 2013183057

PATIENT
  Age: 69 Year
  Sex: Female

DRUGS (1)
  1. FRAGMINE [Suspect]
     Route: 058
     Dates: start: 20130427, end: 20130512

REACTIONS (5)
  - Multi-organ failure [None]
  - Acute respiratory distress syndrome [None]
  - Hepatocellular injury [None]
  - Renal failure acute [None]
  - Pancytopenia [None]
